FAERS Safety Report 11924754 (Version 1)
Quarter: 2016Q1

REPORT INFORMATION
  Report Type: Spontaneous
  Country: US (occurrence: US)
  Receive Date: 20160118
  Receipt Date: 20160118
  Transmission Date: 20160526
  Serious: No
  Sender: FDA-Public Use
  Company Number: US-ENDO PHARMACEUTICALS INC.-2015-000715

PATIENT
  Age: 61 Year
  Sex: Female

DRUGS (5)
  1. HYDROXYCHLOROQUINE [Suspect]
     Active Substance: HYDROXYCHLOROQUINE
     Indication: PRODUCT USED FOR UNKNOWN INDICATION
     Route: 065
     Dates: start: 2012
  2. RHEUMATREX [Suspect]
     Active Substance: METHOTREXATE SODIUM
     Indication: PRODUCT USED FOR UNKNOWN INDICATION
     Route: 065
     Dates: start: 201404
  3. RHEUMATREX [Suspect]
     Active Substance: METHOTREXATE SODIUM
     Route: 065
  4. PREDNISONE TABLETS [Suspect]
     Active Substance: PREDNISONE
     Indication: PRODUCT USED FOR UNKNOWN INDICATION
     Route: 065
     Dates: start: 2012
  5. RHEUMATREX [Suspect]
     Active Substance: METHOTREXATE SODIUM
     Route: 065
     Dates: start: 2012, end: 201404

REACTIONS (4)
  - Influenza [Unknown]
  - Nasopharyngitis [Unknown]
  - Alopecia [Recovered/Resolved]
  - Stress [Recovered/Resolved]

NARRATIVE: CASE EVENT DATE: 201503
